FAERS Safety Report 8864692 (Version 1)
Quarter: 2012Q4

REPORT INFORMATION
  Report Type: 
  Country: US (occurrence: US)
  Receive Date: 20121024
  Receipt Date: 20121024
  Transmission Date: 20130627
  Serious: No
  Sender: FDA-Public Use
  Company Number: US-AMGEN-USASP2011068975

PATIENT
  Age: 64 Year
  Sex: Male
  Weight: 145.13 kg

DRUGS (4)
  1. ENBREL [Suspect]
     Indication: PRODUCT USED FOR UNKNOWN INDICATION
     Dosage: 50 mg, 2 times/wk
     Route: 058
  2. DEMADEX                            /01036501/ [Concomitant]
     Dosage: 5 mg, UNK
  3. LOTENSIN                           /00909102/ [Concomitant]
     Dosage: 5 mg, UNK
  4. CARDIZEM                           /00489701/ [Concomitant]
     Dosage: 30 mg, UNK

REACTIONS (3)
  - Injection site warmth [Unknown]
  - Injection site reaction [Unknown]
  - Injection site erythema [Unknown]
